FAERS Safety Report 16394041 (Version 3)
Quarter: 2020Q4

REPORT INFORMATION
  Report Type: Spontaneous
  Country: US (occurrence: US)
  Receive Date: 20190605
  Receipt Date: 20201124
  Transmission Date: 20210113
  Serious: Yes (Hospitalization, Other)
  Sender: FDA-Public Use
  Company Number: US-JNJFOC-20190541700

PATIENT
  Age: 53 Year
  Sex: Female
  Weight: 123.03 kg

DRUGS (7)
  1. STELARA [Suspect]
     Active Substance: USTEKINUMAB
     Indication: PSORIASIS
     Route: 058
  2. METHOCARBAMOL. [Concomitant]
     Active Substance: METHOCARBAMOL
     Route: 065
  3. STELARA [Suspect]
     Active Substance: USTEKINUMAB
     Route: 058
     Dates: start: 201605, end: 20190410
  4. ALBUTEROL SULFATE. [Concomitant]
     Active Substance: ALBUTEROL SULFATE
     Route: 065
  5. STELARA [Suspect]
     Active Substance: USTEKINUMAB
     Route: 058
     Dates: end: 20190516
  6. CLOBETASOL [Concomitant]
     Active Substance: CLOBETASOL
     Route: 065
  7. ALEVE [Concomitant]
     Active Substance: NAPROXEN SODIUM
     Route: 065

REACTIONS (3)
  - Lymphoma [Not Recovered/Not Resolved]
  - Histiocytic sarcoma [Recovering/Resolving]
  - Psoriasis [Unknown]
